FAERS Safety Report 9355442 (Version 1)
Quarter: 2013Q2

REPORT INFORMATION
  Report Type: Report from Study
  Country: US (occurrence: US)
  Receive Date: 20130619
  Receipt Date: 20130619
  Transmission Date: 20140414
  Serious: Yes (Hospitalization)
  Sender: FDA-Public Use
  Company Number: US-JNJFOC-20130608580

PATIENT
  Age: 65 Year
  Sex: Female
  Weight: 143.9 kg

DRUGS (3)
  1. REMICADE [Suspect]
     Indication: PSORIASIS
     Route: 042
     Dates: start: 200710
  2. METHOTREXATE [Suspect]
     Indication: PSORIASIS
     Route: 065
  3. TACLONEX [Suspect]
     Indication: PSORIASIS
     Route: 061

REACTIONS (2)
  - Sleep apnoea syndrome [Recovered/Resolved with Sequelae]
  - Bradycardia [Recovered/Resolved with Sequelae]
